FAERS Safety Report 14441731 (Version 1)
Quarter: 2018Q1

REPORT INFORMATION
  Report Type: Report from Study
  Country: US (occurrence: US)
  Receive Date: 20180125
  Receipt Date: 20180125
  Transmission Date: 20180509
  Serious: Yes (Death, Hospitalization, Other)
  Sender: FDA-Public Use
  Company Number: US-TAKEDA-2018TUS001998

PATIENT
  Age: 67 Year
  Sex: Female

DRUGS (2)
  1. VORTIOXETINE. [Suspect]
     Active Substance: VORTIOXETINE
     Indication: MAJOR DEPRESSION
     Dosage: 20 MG, QD
     Route: 048
     Dates: end: 20171225
  2. KLONOPIN [Concomitant]
     Active Substance: CLONAZEPAM
     Indication: SLEEP DISORDER
     Route: 048

REACTIONS (4)
  - Death [Fatal]
  - Hallucination [Unknown]
  - Hepatic cancer [Unknown]
  - Lung neoplasm malignant [Unknown]

NARRATIVE: CASE EVENT DATE: 20171206
